FAERS Safety Report 25105496 (Version 2)
Quarter: 2025Q1

REPORT INFORMATION
  Report Type: Spontaneous
  Country: US (occurrence: US)
  Receive Date: 20250321
  Receipt Date: 20250325
  Transmission Date: 20250409
  Serious: No
  Sender: PFIZER
  Company Number: US-PFIZER INC-PV202500032720

PATIENT
  Sex: Female

DRUGS (1)
  1. LEVOXYL [Suspect]
     Active Substance: LEVOTHYROXINE SODIUM

REACTIONS (5)
  - Product contamination physical [Unknown]
  - Poor quality product administered [Unknown]
  - Headache [Unknown]
  - Abdominal discomfort [Unknown]
  - Cerebral disorder [Unknown]
